FAERS Safety Report 17713549 (Version 1)
Quarter: 2020Q2

REPORT INFORMATION
  Report Type: Spontaneous
  Country: US (occurrence: US)
  Receive Date: 20200424
  Receipt Date: 20200424
  Transmission Date: 20200714
  Serious: No
  Sender: FDA-Public Use
  Company Number: None

PATIENT

DRUGS (2)
  1. ADDERALL [Suspect]
     Active Substance: AMPHETAMINE ASPARTATE\AMPHETAMINE SULFATE\DEXTROAMPHETAMINE SACCHARATE\DEXTROAMPHETAMINE SULFATE
  2. ACCUTANE [Suspect]
     Active Substance: ISOTRETINOIN

REACTIONS (6)
  - Brain injury [None]
  - Therapy interrupted [None]
  - Social avoidant behaviour [None]
  - Paranoia [None]
  - Quality of life decreased [None]
  - Loss of employment [None]
